FAERS Safety Report 19656761 (Version 1)
Quarter: 2021Q3

REPORT INFORMATION
  Report Type: Spontaneous
  Country: US (occurrence: US)
  Receive Date: 20210804
  Receipt Date: 20210804
  Transmission Date: 20211014
  Serious: Yes (Other)
  Sender: FDA-Public Use
  Company Number: US-ACCORD-234350

PATIENT
  Age: 62 Year
  Sex: Male

DRUGS (7)
  1. MITOMYCIN. [Suspect]
     Active Substance: MITOMYCIN
     Indication: OPEN ANGLE GLAUCOMA
     Dosage: 0.2 ML OF 0.2 MG/ML
     Route: 031
  2. DEXAMETHASONE/TOBRAMYCIN [Concomitant]
     Active Substance: DEXAMETHASONE\TOBRAMYCIN
  3. GATIFLOXACIN. [Concomitant]
     Active Substance: GATIFLOXACIN
  4. MARCAINE [Concomitant]
     Active Substance: BUPIVACAINE HYDROCHLORIDE
  5. LIDOCAINE. [Concomitant]
     Active Substance: LIDOCAINE
  6. FLUOROURACIL. [Concomitant]
     Active Substance: FLUOROURACIL
  7. PREDNISOLONE. [Concomitant]
     Active Substance: PREDNISOLONE
     Dosage: 1%
     Route: 061

REACTIONS (5)
  - Retinal injury [Not Recovered/Not Resolved]
  - Accidental exposure to product [Unknown]
  - Blindness [Not Recovered/Not Resolved]
  - Retinal detachment [Not Recovered/Not Resolved]
  - Off label use [Unknown]
